FAERS Safety Report 9868366 (Version 1)
Quarter: 2014Q1

REPORT INFORMATION
  Report Type: Spontaneous
  Country: US (occurrence: US)
  Receive Date: 20140204
  Receipt Date: 20140204
  Transmission Date: 20141002
  Serious: Yes (Other)
  Sender: FDA-Public Use
  Company Number: US-MYLANLABS-2014S1001740

PATIENT
  Age: 51 Year
  Sex: Male

DRUGS (11)
  1. MYCOPHENOLATE MOFETIL [Suspect]
     Route: 065
  2. PREDNISONE [Concomitant]
     Route: 065
  3. TACROLIMUS [Concomitant]
     Route: 065
  4. ACICLOVIR [Concomitant]
     Route: 065
  5. ITRACONAZOLE [Concomitant]
     Route: 065
  6. COTRIMOXAZOLE [Concomitant]
     Dosage: TRIMETHOPRIM 160MG/SULFAMETHOXAZOLE 800MG 3 TIMES A WEEK
     Route: 065
  7. HEPARIN [Concomitant]
     Dosage: 5000 UNITS TWICE DAILY
     Route: 058
  8. OMEPRAZOLE [Concomitant]
     Dosage: 40MG DAILY
     Route: 065
  9. PRAVASTATIN [Concomitant]
     Dosage: 40MG DAILY
     Route: 065
  10. FUROSEMIDE [Concomitant]
     Route: 065
  11. MILRINONE [Concomitant]
     Route: 050

REACTIONS (3)
  - Pulmonary alveolar haemorrhage [Recovering/Resolving]
  - Acute respiratory failure [Recovering/Resolving]
  - Capillaritis [Recovering/Resolving]
